FAERS Safety Report 6904687-0 (Version None)
Quarter: 2010Q3

REPORT INFORMATION
  Report Type: 
  Country: None (occurrence: None)
  Receive Date: 20100804
  Receipt Date: 20090630
  Transmission Date: 20110219
  Serious: No
  Sender: FDA-Public Use
  Company Number: US-PFIZER INC-2009203128

PATIENT
  Sex: Female
  Weight: 147 kg

DRUGS (1)
  1. LYRICA [Suspect]
     Indication: NERVE COMPRESSION
     Dosage: UNK
     Dates: start: 20050101

REACTIONS (2)
  - MEMORY IMPAIRMENT [None]
  - PRODUCT CONTAINER SEAL ISSUE [None]
